FAERS Safety Report 12547228 (Version 2)
Quarter: 2017Q1

REPORT INFORMATION
  Report Type: Spontaneous
  Country: US (occurrence: US)
  Receive Date: 20160711
  Receipt Date: 20170119
  Transmission Date: 20170428
  Serious: No
  Sender: FDA-Public Use
  Company Number: US-EGALET US INC-US-2015EGA000176

PATIENT

DRUGS (1)
  1. SPRIX [Suspect]
     Active Substance: KETOROLAC TROMETHAMINE
     Indication: PRODUCT USED FOR UNKNOWN INDICATION
     Dosage: UNK

REACTIONS (7)
  - Nasal discomfort [Unknown]
  - Sneezing [Unknown]
  - Drug administration error [Unknown]
  - Incorrect drug administration duration [Unknown]
  - Drug effect delayed [Unknown]
  - Bloody discharge [Recovered/Resolved]
  - Drug effect decreased [Unknown]
